FAERS Safety Report 23694787 (Version 1)
Quarter: 2024Q2

REPORT INFORMATION
  Report Type: Spontaneous
  Country: NZ (occurrence: NZ)
  Receive Date: 20240402
  Receipt Date: 20240402
  Transmission Date: 20240716
  Serious: No
  Sender: FDA-Public Use
  Company Number: NZ-ALKEM LABORATORIES LIMITED-NZ-ALKEM-2023-16556

PATIENT
  Age: 46 Year
  Sex: Male

DRUGS (1)
  1. COLCHICINE [Suspect]
     Active Substance: COLCHICINE
     Indication: Product used for unknown indication
     Dosage: UNK
     Route: 065

REACTIONS (4)
  - Hypotension [Unknown]
  - Metabolic acidosis [Unknown]
  - Toxicity to various agents [Unknown]
  - Overdose [Unknown]
